FAERS Safety Report 12254583 (Version 2)
Quarter: 2016Q2

REPORT INFORMATION
  Report Type: Spontaneous
  Country: US (occurrence: US)
  Receive Date: 20160411
  Receipt Date: 20160420
  Transmission Date: 20160815
  Serious: No
  Sender: FDA-Public Use
  Company Number: US-MDT-ADR-2016-00651

PATIENT
  Age: 64 Year
  Sex: Male

DRUGS (4)
  1. OXYCONTIN [Suspect]
     Active Substance: OXYCODONE HYDROCHLORIDE
     Dosage: 40 MG 2/DAY
  2. MORPHINE [Suspect]
     Active Substance: MORPHINE
     Dosage: 4.4458 MG/DAY
     Route: 037
  3. LYRICA [Suspect]
     Active Substance: PREGABALIN
     Dosage: 150 MG 3/DAY
  4. COMPOUNDED BACLOFEN [Suspect]
     Active Substance: BACLOFEN
     Dosage: 246.99 MCG/DAY
     Route: 037

REACTIONS (1)
  - Pain [Unknown]
